FAERS Safety Report 13324481 (Version 8)
Quarter: 2018Q2

REPORT INFORMATION
  Report Type: Report from Study
  Country: US (occurrence: US)
  Receive Date: 20170310
  Receipt Date: 20180406
  Transmission Date: 20180711
  Serious: Yes (Hospitalization, Disabling, Other)
  Sender: FDA-Public Use
  Company Number: PHHY2017US036150

PATIENT
  Age: 25 Year
  Sex: Female
  Weight: 65 kg

DRUGS (13)
  1. SYNTHROID [Concomitant]
     Active Substance: LEVOTHYROXINE SODIUM
     Indication: HYPOTHYROIDISM
     Dosage: 75 UG, QD
     Route: 048
  2. DECADRAN [Concomitant]
     Active Substance: DEXAMETHASONE
     Dosage: 1  DF (4 MG), TID X 2
     Route: 048
  3. LOVENOX [Concomitant]
     Active Substance: ENOXAPARIN SODIUM
     Indication: PROPHYLAXIS
     Dosage: UNK
     Route: 065
     Dates: start: 20170329, end: 20170409
  4. DECADRAN [Concomitant]
     Active Substance: DEXAMETHASONE
     Indication: PRODUCT USED FOR UNKNOWN INDICATION
     Dosage: 1  DF (4 MG), TID X 2
     Route: 048
  5. DECADRAN [Concomitant]
     Active Substance: DEXAMETHASONE
     Dosage: 1  DF (4 MG), TID X 2
     Route: 048
  6. VITAMIN D [Concomitant]
     Active Substance: CHOLECALCIFEROL
     Indication: MULTIPLE SCLEROSIS
     Dosage: 5000 IU, UNK
     Route: 065
  7. THORAZINE [Concomitant]
     Active Substance: CHLORPROMAZINE
     Dosage: 1  DF (25 MG), TID X 2
     Route: 048
  8. VITAMIN D3 [Concomitant]
     Active Substance: CHOLECALCIFEROL
     Indication: PRODUCT USED FOR UNKNOWN INDICATION
     Dosage: 5000 U, QD
     Route: 048
  9. NORCO [Concomitant]
     Active Substance: ACETAMINOPHEN\HYDROCODONE BITARTRATE
     Indication: PRODUCT USED FOR UNKNOWN INDICATION
     Dosage: 1 DF (5-325 MG) Q 4 TO 6 H
     Route: 048
  10. PRENAT [Concomitant]
     Indication: PRODUCT USED FOR UNKNOWN INDICATION
     Dosage: 1 DF (28-0.8), QD
     Route: 048
  11. THORAZINE [Concomitant]
     Active Substance: CHLORPROMAZINE
     Indication: PRODUCT USED FOR UNKNOWN INDICATION
     Dosage: 1  DF (25 MG), TID X 2
     Route: 048
  12. GILENYA [Suspect]
     Active Substance: FINGOLIMOD HYDROCHLORIDE
     Indication: RELAPSING-REMITTING MULTIPLE SCLEROSIS
     Dosage: 0.5 MG, QD
     Route: 048
     Dates: start: 20150825, end: 20170124
  13. THORAZINE [Concomitant]
     Active Substance: CHLORPROMAZINE
     Dosage: 1  DF (25 MG), TID X 2
     Route: 048

REACTIONS (28)
  - Hypoaesthesia [Recovered/Resolved]
  - Dyspnoea [Recovering/Resolving]
  - Urinary incontinence [Recovered/Resolved]
  - Lymphocyte count decreased [Recovering/Resolving]
  - Cystitis [Unknown]
  - Fatigue [Unknown]
  - Alanine aminotransferase decreased [Unknown]
  - Nausea [Recovered/Resolved]
  - Dehydration [Recovered/Resolved]
  - Respiratory depression [Recovered/Resolved]
  - Inspiratory capacity decreased [Recovering/Resolving]
  - Dysphagia [Unknown]
  - Urinary tract infection staphylococcal [Unknown]
  - Dysuria [Recovered/Resolved]
  - Chronic hepatitis C [Not Recovered/Not Resolved]
  - Blood pressure decreased [Unknown]
  - Asthenia [Unknown]
  - Leukopenia [Recovered/Resolved]
  - Multiple sclerosis relapse [Recovered/Resolved]
  - Urinary retention [Unknown]
  - Hypokalaemia [Unknown]
  - Urinary tract infection [Recovered/Resolved]
  - Gait disturbance [Unknown]
  - Dysarthria [Recovered/Resolved]
  - Sleep disorder [Unknown]
  - Paraesthesia [Unknown]
  - Affective disorder [Unknown]
  - Hyponatraemia [Unknown]

NARRATIVE: CASE EVENT DATE: 20161214
